FAERS Safety Report 5828137-0 (Version None)
Quarter: 2008Q3

REPORT INFORMATION
  Report Type: 
  Country: None (occurrence: None)
  Receive Date: 20080731
  Receipt Date: 20080722
  Transmission Date: 20090109
  Serious: Yes (Life-Threatening, Other)
  Sender: FDA-Public Use
  Company Number: GB-JNJFOC-20080600431

PATIENT
  Age: 73 Year
  Sex: Female

DRUGS (6)
  1. DURAGESIC-100 [Suspect]
     Indication: PAIN
     Route: 062
  2. ACETAMINOPHEN W/ CODEINE [Concomitant]
     Route: 048
  3. MORPHINE [Concomitant]
     Route: 030
  4. MORPHINE [Concomitant]
     Route: 030
  5. TRAMADOL HCL [Concomitant]
     Route: 065
  6. CYCLIMORPH [Concomitant]
     Route: 042

REACTIONS (3)
  - FRACTURE [None]
  - OVERDOSE [None]
  - WRONG TECHNIQUE IN DRUG USAGE PROCESS [None]
